FAERS Safety Report 9672130 (Version 3)
Quarter: 2013Q4

REPORT INFORMATION
  Report Type: Spontaneous
  Country: US (occurrence: US)
  Receive Date: 20131106
  Receipt Date: 20131226
  Transmission Date: 20140711
  Serious: Yes (Hospitalization)
  Sender: FDA-Public Use
  Company Number: PHEH2013US006395

PATIENT
  Age: 50 Year
  Sex: Female

DRUGS (1)
  1. RECLAST [Suspect]
     Indication: OSTEOPOROSIS
     Dosage: UNK UKN, UNK
     Route: 042
     Dates: start: 20130312

REACTIONS (9)
  - Hypomagnesaemia [Recovered/Resolved]
  - Hypocalcaemia [Recovered/Resolved]
  - Tetany [Recovered/Resolved]
  - Muscle spasms [Recovered/Resolved]
  - Heart rate increased [Unknown]
  - Throat tightness [Unknown]
  - Musculoskeletal stiffness [Unknown]
  - Trismus [Unknown]
  - Pyrexia [Unknown]
